FAERS Safety Report 5214875-X (Version None)
Quarter: 2007Q1

REPORT INFORMATION
  Report Type: 
  Country: None (occurrence: None)
  Receive Date: 20070122
  Receipt Date: 20070122
  Transmission Date: 20070707
  Serious: Yes (Other)
  Sender: FDA-Public Use
  Company Number: None

PATIENT
  Age: 49 Year
  Sex: Female
  Weight: 86.1834 kg

DRUGS (1)
  1. CYMBALTA [Suspect]
     Indication: PROCEDURAL PAIN
     Dosage: 30 MG QD PO
     Route: 048
     Dates: start: 20061213, end: 20070118

REACTIONS (16)
  - CHEST PAIN [None]
  - CONSTIPATION [None]
  - DRY MOUTH [None]
  - FAECALOMA [None]
  - FEAR [None]
  - HAEMATOCHEZIA [None]
  - INSOMNIA [None]
  - LIBIDO DECREASED [None]
  - NEGATIVE THOUGHTS [None]
  - PARAESTHESIA [None]
  - PRURITUS [None]
  - RASH [None]
  - SUICIDAL IDEATION [None]
  - VISION BLURRED [None]
  - VISUAL ACUITY REDUCED [None]
  - WEIGHT INCREASED [None]
